FAERS Safety Report 9358600 (Version 1)
Quarter: 2013Q2

REPORT INFORMATION
  Report Type: Spontaneous
  Country: FR (occurrence: FR)
  Receive Date: 20130620
  Receipt Date: 20130620
  Transmission Date: 20140414
  Serious: Yes (Life-Threatening, Hospitalization)
  Sender: FDA-Public Use
  Company Number: PHHY2013FR061947

PATIENT
  Age: 77 Year
  Sex: Female

DRUGS (14)
  1. FUROSEMIDE SANDOZ [Suspect]
     Dosage: 80 MG, DAILY
     Route: 048
     Dates: end: 20120704
  2. FLUCONAZOLE [Suspect]
     Indication: FUNGAL INFECTION
     Dosage: 25 MG, DAILY
     Route: 048
     Dates: start: 201206, end: 20120702
  3. COLCHIMAX [Suspect]
     Indication: GOUT
     Dosage: 1 DF, QD
     Route: 048
     Dates: start: 20120630, end: 20120704
  4. DUPHALAC [Suspect]
     Dosage: 2 DF, DAILY
     Route: 048
  5. DALACINE - PER ORAL [Suspect]
     Dosage: 600 MG, TID
     Dates: start: 20120607
  6. FUCIDINE [Suspect]
     Dosage: 500 MG, TID
     Route: 048
     Dates: start: 201206
  7. MIANSERINE SANDOZ [Concomitant]
     Dosage: 1 DF, QD
     Route: 048
  8. PANTOPRAZOLE SANDOZ [Concomitant]
     Dosage: 1 DF, QD
     Route: 048
  9. ZOLPIDEM ARROW [Concomitant]
     Dosage: 0.5 DF, AT NIGHT
  10. SERESTA [Concomitant]
     Dosage: 10 MG, BID
  11. DAFALGAN [Concomitant]
     Dosage: 1 G, TID
  12. ECONAZOLE SANDOZ [Concomitant]
     Dosage: 1 DF, QD
     Route: 003
     Dates: start: 201206
  13. ACUPAN [Concomitant]
     Dosage: 20 MG, BID
     Route: 048
     Dates: start: 20120702, end: 20120704
  14. RIFADINE [Concomitant]

REACTIONS (4)
  - Metabolic acidosis [Recovered/Resolved]
  - Hypotension [Recovered/Resolved]
  - Renal failure chronic [Recovered/Resolved]
  - Diarrhoea [Recovered/Resolved]
